FAERS Safety Report 24241673 (Version 1)
Quarter: 2024Q3

REPORT INFORMATION
  Report Type: Spontaneous
  Country: US (occurrence: US)
  Receive Date: 20240823
  Receipt Date: 20240823
  Transmission Date: 20241017
  Serious: No
  Sender: BLUEPRINT MEDICINES
  Company Number: US-Blueprint Medicines Corporation-4549

PATIENT
  Sex: Male

DRUGS (1)
  1. AYVAKIT [Suspect]
     Active Substance: AVAPRITINIB
     Indication: Malignant mast cell neoplasm
     Route: 048
     Dates: start: 20240327

REACTIONS (6)
  - Scrotal oedema [Unknown]
  - Oedema [Unknown]
  - Face injury [Unknown]
  - Limb injury [Unknown]
  - Haemorrhage [Unknown]
  - Gastric lavage [Unknown]
